FAERS Safety Report 5222102-2 (Version None)
Quarter: 2007Q1

REPORT INFORMATION
  Report Type: 
  Country: None (occurrence: None)
  Receive Date: 20070129
  Receipt Date: 20060621
  Transmission Date: 20070707
  Serious: No
  Sender: FDA-Public Use
  Company Number: US-GLAXOSMITHKLINE-A0609868A

PATIENT
  Age: 39 Year
  Sex: Male

DRUGS (1)
  1. WELLBUTRIN [Suspect]
     Indication: DEPRESSION
     Dosage: 200MG UNKNOWN
     Route: 048

REACTIONS (4)
  - DRUG ADMINISTRATION ERROR [None]
  - MOUTH ULCERATION [None]
  - PHARYNGEAL HYPOAESTHESIA [None]
  - VOMITING [None]
